FAERS Safety Report 6375098-4 (Version None)
Quarter: 2009Q3

REPORT INFORMATION
  Report Type: 
  Country: None (occurrence: None)
  Receive Date: 20090924
  Receipt Date: 20090917
  Transmission Date: 20100115
  Serious: Yes (Other)
  Sender: FDA-Public Use
  Company Number: DE-AVENTIS-200912346DE

PATIENT
  Age: 12 Year
  Sex: Female
  Weight: 47 kg

DRUGS (2)
  1. CEFOTAXIM [Suspect]
     Dates: start: 20090604, end: 20090605
  2. TOBRAMYCIN [Concomitant]
     Dates: start: 20090604, end: 20090605

REACTIONS (1)
  - ENCEPHALOPATHY [None]
